FAERS Safety Report 19939071 (Version 1)
Quarter: 2021Q4

REPORT INFORMATION
  Report Type: Spontaneous
  Country: US (occurrence: US)
  Receive Date: 20211011
  Receipt Date: 20211011
  Transmission Date: 20220304
  Serious: Yes (Other)
  Sender: FDA-Public Use
  Company Number: US-ACCORD-213917

PATIENT
  Sex: Female
  Weight: 74.9 kg

DRUGS (6)
  1. CISPLATIN [Suspect]
     Active Substance: CISPLATIN
     Indication: Cervix carcinoma
     Route: 042
     Dates: start: 20200727, end: 202008
  2. COREG [Concomitant]
     Active Substance: CARVEDILOL
     Dosage: STRENGTH-12MG
  3. LEXAPRO [Concomitant]
     Active Substance: ESCITALOPRAM OXALATE
     Dosage: TWICE A DAY
  4. PREMPRO [Concomitant]
     Active Substance: ESTROGENS, CONJUGATED\MEDROXYPROGESTERONE ACETATE
     Dosage: STRENGTH-0.625 MG
  5. LYRICA [Concomitant]
     Active Substance: PREGABALIN
     Dosage: STRENGTH-50 MG THREE TIMES A DAY
  6. Nucynta ext-release [Concomitant]
     Dosage: STRENGTH-100 MG TWICE A DAY

REACTIONS (1)
  - Ototoxicity [Unknown]
